FAERS Safety Report 8137839-5 (Version None)
Quarter: 2012Q1

REPORT INFORMATION
  Report Type: 
  Country: None (occurrence: None)
  Receive Date: 20120215
  Receipt Date: 20120212
  Transmission Date: 20120608
  Serious: Yes (Other)
  Sender: FDA-Public Use
  Company Number: MY-BAYER-2012-013823

PATIENT
  Age: 77 Year
  Sex: Male

DRUGS (1)
  1. NEXAVAR [Suspect]
     Indication: HEPATIC NEOPLASM MALIGNANT
     Dosage: 200 MG, BID
     Route: 048

REACTIONS (7)
  - HAEMATURIA [None]
  - PYREXIA [None]
  - ABDOMINAL DISCOMFORT [None]
  - HEPATIC LESION [None]
  - CYSTITIS [None]
  - CHOLELITHIASIS [None]
  - BLADDER HYPERTROPHY [None]
